FAERS Safety Report 10913560 (Version 1)
Quarter: 2015Q1

REPORT INFORMATION
  Report Type: Spontaneous
  Country: US (occurrence: US)
  Receive Date: 20150313
  Receipt Date: 20150313
  Transmission Date: 20150721
  Serious: No
  Sender: FDA-Public Use
  Company Number: US-ELI_LILLY_AND_COMPANY-US201503002844

PATIENT
  Sex: Female

DRUGS (1)
  1. HUMALOG [Suspect]
     Active Substance: INSULIN LISPRO
     Indication: TYPE 2 DIABETES MELLITUS
     Dosage: UNK, PRN
     Route: 065
     Dates: start: 201407

REACTIONS (7)
  - Blood pressure orthostatic decreased [Unknown]
  - Drug dose omission [Unknown]
  - Cough [Unknown]
  - Feeling of body temperature change [Unknown]
  - Blood glucose increased [Unknown]
  - Drug interaction [Unknown]
  - Dizziness [Unknown]
